FAERS Safety Report 8345351-3 (Version None)
Quarter: 2012Q2

REPORT INFORMATION
  Report Type: 
  Country: None (occurrence: None)
  Receive Date: 20120504
  Receipt Date: 20120426
  Transmission Date: 20120825
  Serious: Yes (Death, Hospitalization)
  Sender: FDA-Public Use
  Company Number: 2012SP022145

PATIENT
  Sex: Female

DRUGS (9)
  1. DEXAMETHASONE [Suspect]
     Indication: METASTASES TO CENTRAL NERVOUS SYSTEM
     Dosage: 4 MG;QD;;, 2 MG;
  2. IBUPROFEN [Concomitant]
  3. TYVERB (LAPATINIB) (LAPATINIB) [Suspect]
     Indication: BREAST CANCER METASTATIC
     Dosage: 1250 MG;QD;
     Dates: start: 20110222, end: 20110921
  4. CAPECITABINE [Suspect]
     Indication: BREAST CANCER METASTATIC
     Dosage: 2000 MG/M2;QD;
     Dates: start: 20110222
  5. ETOPOSIDE [Suspect]
     Indication: BRAIN CANCER METASTATIC
  6. HERCEPTIN [Concomitant]
  7. ACETAMINOPHEN [Concomitant]
  8. CARBOPLATIN [Suspect]
     Indication: BREAST CANCER METASTATIC
  9. DOCETAXEL [Concomitant]

REACTIONS (22)
  - BREAST CANCER METASTATIC [None]
  - NAIL INFECTION [None]
  - FATIGUE [None]
  - VOMITING [None]
  - DIARRHOEA [None]
  - TOXICITY TO VARIOUS AGENTS [None]
  - PYURIA [None]
  - DIZZINESS [None]
  - AGGRESSION [None]
  - LEUKOCYTOSIS [None]
  - POLLAKIURIA [None]
  - METASTASES TO CENTRAL NERVOUS SYSTEM [None]
  - COORDINATION ABNORMAL [None]
  - HEADACHE [None]
  - DYSPEPSIA [None]
  - INTRACRANIAL PRESSURE INCREASED [None]
  - HYPOAESTHESIA [None]
  - METASTASES TO LIVER [None]
  - NEOPLASM PROGRESSION [None]
  - NAUSEA [None]
  - DYSARTHRIA [None]
  - CONFUSIONAL STATE [None]
